FAERS Safety Report 9394473 (Version 1)
Quarter: 2013Q3

REPORT INFORMATION
  Report Type: Spontaneous
  Country: US (occurrence: US)
  Receive Date: 20130711
  Receipt Date: 20130711
  Transmission Date: 20140515
  Serious: Yes (Hospitalization)
  Sender: FDA-Public Use
  Company Number: US-PFIZER INC-2013202990

PATIENT
  Age: 43 Year
  Sex: Female
  Weight: 91.61 kg

DRUGS (3)
  1. CELEBREX [Suspect]
     Indication: PSORIATIC ARTHROPATHY
     Dosage: 200 MG, 1X/DAY
     Route: 048
     Dates: start: 2010
  2. GABAPENTIN [Concomitant]
     Dosage: 100 MG, UNK
  3. LEVOTHYROXINE [Concomitant]
     Dosage: UNK

REACTIONS (4)
  - Psoriatic arthropathy [Unknown]
  - Pain in extremity [Unknown]
  - Joint swelling [Unknown]
  - Nerve compression [Unknown]
